FAERS Safety Report 7141636-7 (Version None)
Quarter: 2010Q4

REPORT INFORMATION
  Report Type: 
  Country: None (occurrence: None)
  Receive Date: 20101207
  Receipt Date: 20101124
  Transmission Date: 20110411
  Serious: Yes (Hospitalization)
  Sender: FDA-Public Use
  Company Number: US-SANOFI-AVENTIS-2010SA059681

PATIENT
  Age: 70 Year
  Sex: Female
  Weight: 98.1 kg

DRUGS (18)
  1. PLAVIX [Suspect]
     Indication: CORONARY ARTERY DISEASE
     Route: 048
     Dates: start: 20090109
  2. PLAVIX [Suspect]
     Indication: PROPHYLAXIS
     Route: 048
     Dates: start: 20090109
  3. STUDY MEDICATION NOT GIVEN [Suspect]
     Indication: OSTEOARTHRITIS
     Dates: start: 20070621, end: 20091101
  4. STUDY MEDICATION NOT GIVEN [Suspect]
     Indication: RHEUMATOID ARTHRITIS
     Dates: start: 20070621, end: 20091101
  5. METFORMIN [Suspect]
     Route: 048
     Dates: start: 20070101
  6. METFORMIN [Suspect]
     Route: 048
     Dates: start: 20071116
  7. VALSARTAN [Suspect]
     Indication: HYPERTENSION
     Route: 048
     Dates: start: 20080112, end: 20100725
  8. NEXIUM [Concomitant]
     Dates: start: 20070621, end: 20091101
  9. CRESTOR [Concomitant]
     Dates: start: 20090109
  10. ASPIRIN [Concomitant]
     Route: 048
     Dates: start: 20070101
  11. VITAMIN B6 [Concomitant]
     Dates: start: 20070910
  12. ALBUTEROL [Concomitant]
     Indication: CHRONIC OBSTRUCTIVE PULMONARY DISEASE
     Dosage: 2 PUFFS EVERY 4 HR AS NEEDED
     Dates: start: 20080424
  13. ADVAIR [Concomitant]
     Dates: start: 20080424
  14. VICODIN [Concomitant]
     Dates: start: 20091102
  15. MAGNESIUM [Concomitant]
     Dates: start: 20080524
  16. ACTOS [Concomitant]
     Dates: start: 20070101
  17. PRILOSEC [Concomitant]
  18. RESTORIL [Concomitant]
     Indication: INSOMNIA
     Dosage: 15 MG AT HOURSLEEP PRN

REACTIONS (5)
  - BACK PAIN [None]
  - NEPHROLITHIASIS [None]
  - RENAL FAILURE ACUTE [None]
  - SEPSIS [None]
  - THROMBOCYTOPENIA [None]
